FAERS Safety Report 18320951 (Version 4)
Quarter: 2020Q4

REPORT INFORMATION
  Report Type: Spontaneous
  Country: GB (occurrence: GB)
  Receive Date: 20200928
  Receipt Date: 20201203
  Transmission Date: 20210113
  Serious: Yes (Other)
  Sender: FDA-Public Use
  Company Number: GB-PFIZER INC-2020370160

PATIENT
  Age: 15 Year
  Sex: Male

DRUGS (4)
  1. VINCRISTINE SULFATE. [Suspect]
     Active Substance: VINCRISTINE SULFATE
     Indication: MEDULLOBLASTOMA
     Dosage: 1.5 MG/M2, CYCLIC (WEEK 1, WEEK 2, WEEK 3, WEEK 7)
  2. CYCLOPHOSPHAMIDE. [Concomitant]
     Active Substance: CYCLOPHOSPHAMIDE
     Indication: MEDULLOBLASTOMA
     Dosage: 1000 MG/M2, CYCLIC (WEEK 7)
  3. CISPLATIN. [Suspect]
     Active Substance: CISPLATIN
     Indication: MEDULLOBLASTOMA
     Dosage: 70 MG/M2, CYCLIC (WEEK 1)
     Route: 042
  4. LOMUSTINE. [Suspect]
     Active Substance: LOMUSTINE
     Indication: MEDULLOBLASTOMA
     Dosage: 75 MG/M2, CYCLIC (WEEK 1)

REACTIONS (1)
  - Cystitis haemorrhagic [Recovered/Resolved]
